FAERS Safety Report 13444848 (Version 1)
Quarter: 2017Q2

REPORT INFORMATION
  Report Type: Spontaneous
  Country: US (occurrence: US)
  Receive Date: 20170414
  Receipt Date: 20170414
  Transmission Date: 20170830
  Serious: No
  Sender: FDA-Public Use
  Company Number: US-ASTRAZENECA-2017SE35660

PATIENT
  Sex: Male
  Weight: 113.4 kg

DRUGS (3)
  1. BRILINTA [Suspect]
     Active Substance: TICAGRELOR
     Indication: CORONARY ARTERY OCCLUSION
     Dosage: TWO TIMES A DAY
     Route: 048
     Dates: start: 20170403
  2. ASPIRIN. [Concomitant]
     Active Substance: ASPIRIN
  3. BRILINTA [Suspect]
     Active Substance: TICAGRELOR
     Indication: STENT PLACEMENT
     Dosage: TWO TIMES A DAY
     Route: 048
     Dates: start: 20170403

REACTIONS (2)
  - Hypertension [Unknown]
  - Dyspnoea [Not Recovered/Not Resolved]
